FAERS Safety Report 5205638-X (Version None)
Quarter: 2007Q1

REPORT INFORMATION
  Report Type: 
  Country: None (occurrence: None)
  Receive Date: 20070105
  Receipt Date: 20070105
  Transmission Date: 20070707
  Serious: Yes (Life-Threatening)
  Sender: FDA-Public Use
  Company Number: None

PATIENT
  Sex: Male
  Weight: 85 kg

DRUGS (14)
  1. INSULIN [Suspect]
     Indication: DIABETES MELLITUS
     Dosage: IV - TITRATED TO BLOOD GLUCOSE
     Route: 042
     Dates: start: 20060702, end: 20060706
  2. ACETAMINOPHEN [Concomitant]
  3. OXYCODONE HCL [Concomitant]
  4. ENOXAPARIN SODIUM [Concomitant]
  5. SUCRALFATE [Concomitant]
  6. METOPROLOL SUCCINATE [Concomitant]
  7. SENNA [Concomitant]
  8. CHLORHEXIDINE [Concomitant]
  9. DOCUSATE [Concomitant]
  10. LORAZEPAM [Concomitant]
  11. BISACODYL [Concomitant]
  12. NYSTATIN [Concomitant]
  13. VANCOMYCIN [Concomitant]
  14. PIPERICLLIN/TAZOBACTRAN [Concomitant]

REACTIONS (2)
  - BLOOD GLUCOSE DECREASED [None]
  - BLOOD GLUCOSE INCREASED [None]
